FAERS Safety Report 7685479-4 (Version None)
Quarter: 2011Q3

REPORT INFORMATION
  Report Type: 
  Country: None (occurrence: None)
  Receive Date: 20110816
  Receipt Date: 20110802
  Transmission Date: 20111222
  Serious: Yes (Disabling)
  Sender: FDA-Public Use
  Company Number: FR-ELI_LILLY_AND_COMPANY-FR201108000550

PATIENT
  Sex: Female

DRUGS (3)
  1. FENOFIBRATE [Concomitant]
     Indication: DYSLIPIDAEMIA
     Dosage: 200 DF, QD
     Route: 065
  2. ACETAMINOPHEN AND CODEINE PHOSPHATE [Concomitant]
     Dosage: UNK UNK, PRN
     Route: 065
  3. FORTEO [Suspect]
     Dosage: UNK UNK, QD
     Route: 058
     Dates: start: 20110201, end: 20110510

REACTIONS (5)
  - SOMNOLENCE [None]
  - VERTIGO [None]
  - HEADACHE [None]
  - PARAESTHESIA [None]
  - MUSCULOSKELETAL PAIN [None]
